FAERS Safety Report 6887978-1 (Version None)
Quarter: 2010Q3

REPORT INFORMATION
  Report Type: 
  Country: None (occurrence: None)
  Receive Date: 20100726
  Receipt Date: 20100717
  Transmission Date: 20110219
  Serious: Yes (Hospitalization)
  Sender: FDA-Public Use
  Company Number: 2010SP039544

PATIENT
  Age: 53 Year
  Sex: Female

DRUGS (4)
  1. REMERON [Suspect]
     Indication: DEPRESSION
     Dosage: 30 MG; ;PO
     Route: 048
     Dates: start: 20100120, end: 20100208
  2. SEROQUEL [Suspect]
     Indication: NERVOUSNESS
     Dosage: 100 MG; ;PO
     Route: 048
     Dates: start: 20100201, end: 20100208
  3. SEROQUEL [Suspect]
     Indication: SOMNOLENCE
     Dosage: 100 MG; ;PO
     Route: 048
     Dates: start: 20100201, end: 20100208
  4. PACEUM [Concomitant]

REACTIONS (8)
  - C-REACTIVE PROTEIN INCREASED [None]
  - ERYTHEMA [None]
  - INTENTIONAL SELF-INJURY [None]
  - NERVOUSNESS [None]
  - PYREXIA [None]
  - SCRATCH [None]
  - SLEEP DISORDER [None]
  - SYNCOPE [None]
